FAERS Safety Report 5222364-1 (Version None)
Quarter: 2007Q1

REPORT INFORMATION
  Report Type: 
  Country: None (occurrence: None)
  Receive Date: 20070124
  Receipt Date: 20070112
  Transmission Date: 20070707
  Serious: No
  Sender: FDA-Public Use
  Company Number: JPI-P-000327

PATIENT
  Age: 54 Year
  Sex: Female

DRUGS (5)
  1. XYREM [Suspect]
     Indication: CATAPLEXY
     Dosage: 90 GM, 1 M, ORAL; SEE IMAGE
     Route: 048
     Dates: end: 20050701
  2. XYREM [Suspect]
     Indication: CATAPLEXY
     Dosage: 90 GM, 1 M, ORAL; SEE IMAGE
     Route: 048
     Dates: start: 20050701, end: 20060201
  3. XYREM [Suspect]
     Indication: CATAPLEXY
     Dosage: 90 GM, 1 M, ORAL; SEE IMAGE
     Route: 048
     Dates: start: 20031219
  4. XYREM [Suspect]
     Indication: CATAPLEXY
     Dosage: 90 GM, 1 M, ORAL; SEE IMAGE
     Route: 048
     Dates: start: 20060201
  5. PAIN MEDICATIONS [Concomitant]
     Indication: PROCEDURAL PAIN
     Dosage: ORAL
     Route: 048
     Dates: start: 20050701, end: 20060201

REACTIONS (7)
  - DIZZINESS [None]
  - DYSPNOEA [None]
  - HALLUCINATION [None]
  - INCONTINENCE [None]
  - LOWER LIMB FRACTURE [None]
  - PROCEDURAL PAIN [None]
  - SEDATION [None]
